FAERS Safety Report 4979164-7 (Version None)
Quarter: 2006Q2

REPORT INFORMATION
  Report Type: 
  Country: None (occurrence: None)
  Receive Date: 20060418
  Receipt Date: 20060330
  Transmission Date: 20061013
  Serious: Yes (Death, Hospitalization, Other)
  Sender: FDA-Public Use
  Company Number: GB200601003085

PATIENT
  Age: 28 Year
  Sex: Male

DRUGS (3)
  1. ZYPREXA [Suspect]
     Indication: PSYCHOTIC DISORDER
     Dosage: SEE IMAGE, ORAL
     Route: 048
     Dates: start: 20051129, end: 20051204
  2. ZYPREXA [Suspect]
     Indication: PSYCHOTIC DISORDER
     Dosage: SEE IMAGE, ORAL
     Route: 048
     Dates: start: 20051204, end: 20051205
  3. ZYPREXA [Suspect]
     Indication: PSYCHOTIC DISORDER
     Dosage: SEE IMAGE, ORAL
     Route: 048
     Dates: start: 20051205, end: 20051207

REACTIONS (5)
  - AGITATION [None]
  - ASPHYXIA [None]
  - CONVULSION [None]
  - FOREIGN BODY TRAUMA [None]
  - TREATMENT NONCOMPLIANCE [None]
